FAERS Safety Report 12899615 (Version 1)
Quarter: 2016Q4

REPORT INFORMATION
  Report Type: Spontaneous
  Country: US (occurrence: US)
  Receive Date: 20161030
  Receipt Date: 20161030
  Transmission Date: 20170207
  Serious: No
  Sender: FDA-Public Use
  Company Number: None

PATIENT
  Age: 62 Year
  Sex: Female
  Weight: 51.3 kg

DRUGS (4)
  1. LASIX [Concomitant]
     Active Substance: FUROSEMIDE
  2. ASA [Concomitant]
     Active Substance: ASPIRIN
  3. PROLIA [Suspect]
     Active Substance: DENOSUMAB
     Indication: OSTEOPOROSIS
  4. CALCIUM 600 WITH D3 AND MINERALS [Concomitant]

REACTIONS (2)
  - Pruritus [None]
  - Alopecia [None]

NARRATIVE: CASE EVENT DATE: 20160922
